FAERS Safety Report 11065851 (Version 3)
Quarter: 2015Q2

REPORT INFORMATION
  Report Type: Spontaneous
  Country: US (occurrence: US)
  Receive Date: 20150425
  Receipt Date: 20150615
  Transmission Date: 20150821
  Serious: Yes (Other)
  Sender: FDA-Public Use
  Company Number: US-JNJFOC-20101100307

PATIENT
  Age: 38 Year
  Sex: Male

DRUGS (2)
  1. LEVAQUIN [Suspect]
     Active Substance: LEVOFLOXACIN
     Indication: PHARYNGITIS
     Route: 065
     Dates: start: 199202
  2. LEVAQUIN [Suspect]
     Active Substance: LEVOFLOXACIN
     Indication: UPPER RESPIRATORY TRACT INFECTION
     Route: 065
     Dates: start: 199202

REACTIONS (3)
  - Tendon rupture [Recovering/Resolving]
  - Tendon rupture [Recovering/Resolving]
  - Tendon discomfort [Recovering/Resolving]

NARRATIVE: CASE EVENT DATE: 199212
